FAERS Safety Report 22193303 (Version 6)
Quarter: 2024Q1

REPORT INFORMATION
  Report Type: Spontaneous
  Country: US (occurrence: US)
  Receive Date: 20230410
  Receipt Date: 20240222
  Transmission Date: 20240410
  Serious: Yes (Other)
  Sender: FDA-Public Use
  Company Number: US-PFIZER INC-PV202300062227

PATIENT
  Age: 13 Year
  Sex: Male
  Weight: 48.99 kg

DRUGS (3)
  1. SOMATROPIN [Suspect]
     Active Substance: SOMATROPIN
     Indication: Growth hormone deficiency
     Dosage: 1.4 MG
     Dates: start: 20230217
  2. SOMATROPIN [Suspect]
     Active Substance: SOMATROPIN
     Dosage: 1.6 MG, DAILY (EVERY NIGHT)
     Route: 058
     Dates: start: 20230217
  3. SOMATROPIN [Suspect]
     Active Substance: SOMATROPIN
     Dosage: 1.8 MG, DAILY (1.8MG NIGHTLY SUBCUTANEOUSLY ON BUTTOCKS)
     Route: 058
     Dates: start: 202302

REACTIONS (7)
  - Blood phosphorus increased [Unknown]
  - Blood alkaline phosphatase increased [Unknown]
  - Coeliac disease [Unknown]
  - Pain in extremity [Unknown]
  - Wrong technique in product usage process [Unknown]
  - Product dose omission issue [Unknown]
  - Product supply issue [Unknown]

NARRATIVE: CASE EVENT DATE: 20231101
